FAERS Safety Report 4856001-2 (Version None)
Quarter: 2005Q4

REPORT INFORMATION
  Report Type: 
  Country: None (occurrence: None)
  Receive Date: 20051216
  Receipt Date: 20051110
  Transmission Date: 20060501
  Serious: Yes (Hospitalization)
  Sender: FDA-Public Use
  Company Number: HQWYE498010NOV05

PATIENT
  Sex: Male
  Weight: 104 kg

DRUGS (6)
  1. ENBREL [Suspect]
     Indication: RHEUMATOID ARTHRITIS
     Route: 058
     Dates: start: 20051005, end: 20051110
  2. IBUPROFEN [Suspect]
     Indication: PAIN
     Route: 048
     Dates: start: 20051005, end: 20051108
  3. PREDNISONE TAB [Suspect]
     Indication: ARTHRITIS
     Route: 048
     Dates: start: 20051005
  4. METHOTREXATE [Suspect]
     Route: 048
     Dates: start: 20051005, end: 20051110
  5. ACETAMINOPHEN [Concomitant]
     Indication: PAIN
     Route: 048
     Dates: start: 20051005
  6. AMITRIPTYLINE HCL [Concomitant]
     Indication: PAIN
     Route: 048
     Dates: start: 20051005

REACTIONS (4)
  - CONDITION AGGRAVATED [None]
  - DRUG INEFFECTIVE [None]
  - GASTROINTESTINAL HAEMORRHAGE [None]
  - RHEUMATOID ARTHRITIS [None]
